FAERS Safety Report 24216287 (Version 3)
Quarter: 2024Q3

REPORT INFORMATION
  Report Type: Spontaneous
  Country: CA (occurrence: CA)
  Receive Date: 20240816
  Receipt Date: 20240930
  Transmission Date: 20241017
  Serious: Yes (Other)
  Sender: CELLTRION
  Company Number: CA-PFIZER INC-202400081125

PATIENT

DRUGS (13)
  1. INFLECTRA [Suspect]
     Active Substance: INFLIXIMAB-DYYB
     Indication: Colitis ulcerative
     Dosage: 5 MG/KG, EVERY 6 WEEKS
     Route: 042
     Dates: start: 20211014
  2. INFLECTRA [Suspect]
     Active Substance: INFLIXIMAB-DYYB
     Dosage: 5 MG/KG, EVERY 6 WEEKS
     Route: 042
     Dates: start: 20240222
  3. INFLECTRA [Suspect]
     Active Substance: INFLIXIMAB-DYYB
     Dosage: 5 MG/KG (530MG), EVERY 6 WEEKS
     Route: 042
     Dates: start: 20240404, end: 20240404
  4. INFLECTRA [Suspect]
     Active Substance: INFLIXIMAB-DYYB
     Dosage: 5 MG/KG (625MG), EVERY 6 WEEKS
     Route: 042
     Dates: start: 20240516
  5. INFLECTRA [Suspect]
     Active Substance: INFLIXIMAB-DYYB
     Dosage: 5 MG/KG (525 MG), EVERY 6 WEEKS
     Route: 042
     Dates: start: 20240627
  6. INFLECTRA [Suspect]
     Active Substance: INFLIXIMAB-DYYB
     Dosage: 5 MG/KG (515 MG), EVERY 6 WEEKS
     Route: 042
     Dates: start: 20240808
  7. INFLECTRA [Suspect]
     Active Substance: INFLIXIMAB-DYYB
     Dosage: 525 MG, (5MG/KG), 6 WEEKS
     Route: 042
     Dates: start: 20240919
  8. CITALOPRAM [Concomitant]
     Active Substance: CITALOPRAM
     Dosage: 10 MG
  9. DEPO-PROVERA [Concomitant]
     Active Substance: MEDROXYPROGESTERONE ACETATE
     Dosage: 1 DF
  10. FLURAZEPAM [Concomitant]
     Active Substance: FLURAZEPAM HYDROCHLORIDE
     Dosage: 1 DF
  11. METHOTREXATE [Concomitant]
     Active Substance: METHOTREXATE
     Dosage: 0.8 ML
     Route: 058
  12. METHOTREXATE [Concomitant]
     Active Substance: METHOTREXATE
     Dosage: 1 DF
     Route: 058
  13. FISH OIL [Concomitant]
     Active Substance: FISH OIL
     Dosage: 1000 MG

REACTIONS (9)
  - Vomiting [Recovered/Resolved]
  - Fatigue [Recovered/Resolved with Sequelae]
  - Food intolerance [Recovered/Resolved with Sequelae]
  - Off label use [Unknown]
  - Intentional product use issue [Unknown]
  - Condition aggravated [Recovered/Resolved]
  - Blood pressure diastolic decreased [Recovered/Resolved]
  - Gastroenteritis viral [Recovered/Resolved]
  - Pancreastatin increased [Recovered/Resolved]

NARRATIVE: CASE EVENT DATE: 20240101
